FAERS Safety Report 9413845 (Version 2)
Quarter: 2013Q3

REPORT INFORMATION
  Report Type: Report from Study
  Country: DE (occurrence: DE)
  Receive Date: 20130723
  Receipt Date: 20130813
  Transmission Date: 20140515
  Serious: Yes (Hospitalization)
  Sender: FDA-Public Use
  Company Number: DE-ROCHE-1251921

PATIENT
  Sex: Female
  Weight: 84 kg

DRUGS (2)
  1. RANIBIZUMAB [Suspect]
     Indication: AGE-RELATED MACULAR DEGENERATION
     Route: 050
     Dates: start: 20130610
  2. RANIBIZUMAB [Suspect]
     Route: 050
     Dates: start: 20130715

REACTIONS (1)
  - Hypertensive crisis [Recovered/Resolved]
